FAERS Safety Report 13382923 (Version 1)
Quarter: 2017Q1

REPORT INFORMATION
  Report Type: Spontaneous
  Country: US (occurrence: US)
  Receive Date: 20170329
  Receipt Date: 20170329
  Transmission Date: 20170429
  Serious: Yes (Other)
  Sender: FDA-Public Use
  Company Number: US-SMITH AND NEPHEW, INC-2017SMT00147

PATIENT
  Age: 57 Year
  Sex: Female
  Weight: 122.45 kg

DRUGS (2)
  1. UNSPECIFIED DIABETIC MEDICATION [Concomitant]
  2. REGRANEX [Suspect]
     Active Substance: BECAPLERMIN
     Indication: WOUND
     Dosage: UNK, 1X/DAY FOR 8 HOURS
     Route: 061
     Dates: start: 201702, end: 2017

REACTIONS (2)
  - Wound infection bacterial [Not Recovered/Not Resolved]
  - Incorrect drug administration duration [Recovered/Resolved]

NARRATIVE: CASE EVENT DATE: 201702
